FAERS Safety Report 5646568-9 (Version None)
Quarter: 2008Q1

REPORT INFORMATION
  Report Type: 
  Country: None (occurrence: None)
  Receive Date: 20080131
  Receipt Date: 20071127
  Transmission Date: 20080703
  Serious: Yes (Other)
  Sender: FDA-Public Use
  Company Number: 163-21880-07111474

PATIENT
  Age: 71 Year
  Sex: Male

DRUGS (3)
  1. REVLIMID [Suspect]
     Indication: MULTIPLE MYELOMA
     Dosage: 20 MG,  X 28 DAYS, ORAL
     Route: 048
     Dates: start: 20071031
  2. LOVENOX [Concomitant]
  3. COUMADIN [Concomitant]

REACTIONS (1)
  - DEEP VEIN THROMBOSIS [None]
